FAERS Safety Report 16850605 (Version 1)
Quarter: 2019Q3

REPORT INFORMATION
  Report Type: Spontaneous
  Country: US (occurrence: US)
  Receive Date: 20190925
  Receipt Date: 20190925
  Transmission Date: 20191005
  Serious: No
  Sender: FDA-Public Use
  Company Number: US-THERAPEUTICSMD-2019TMD02249

PATIENT
  Age: 65 Year
  Sex: Female
  Weight: 109.75 kg

DRUGS (6)
  1. METRONIDAZOLE. [Suspect]
     Active Substance: METRONIDAZOLE
     Dosage: UNK, 2X/WEEK
     Dates: start: 201907
  2. IMVEXXY [Suspect]
     Active Substance: ESTRADIOL
     Indication: VULVOVAGINAL DRYNESS
     Dosage: 4 ?G, 1X/DAY BEFORE BED
     Route: 067
     Dates: start: 20190717
  3. OTC PROBIOTICS [Concomitant]
     Dosage: UNK, 1X/DAY
  4. OTC IRON TABLETS [Concomitant]
     Dosage: UNK, 1X/DAY
  5. METRONIDAZOLE. [Suspect]
     Active Substance: METRONIDAZOLE
     Indication: BACTERIAL INFECTION
     Dosage: UNK, 1X/DAY
     Dates: start: 201906, end: 201907
  6. OTC VITAMIN D [Concomitant]
     Dosage: UNK, 1X/DAY

REACTIONS (2)
  - Off label use [Not Recovered/Not Resolved]
  - Bacterial infection [Not Recovered/Not Resolved]

NARRATIVE: CASE EVENT DATE: 201907
